FAERS Safety Report 6429343-7 (Version None)
Quarter: 2009Q4

REPORT INFORMATION
  Report Type: 
  Country: None (occurrence: None)
  Receive Date: 20091102
  Receipt Date: 20091022
  Transmission Date: 20100525
  Serious: Yes (Other)
  Sender: FDA-Public Use
  Company Number: US-1169658

PATIENT
  Sex: Female

DRUGS (2)
  1. NEVANAC [Suspect]
     Indication: CATARACT OPERATION
     Dosage: 1 GTT OU QID OPHTHALMIC, 1 GTT OU QID OPHTHALMIC,  1 GTT  OU TID OPHTHALMIC
     Route: 047
     Dates: start: 20080701, end: 20081001
  2. NEVANAC [Suspect]
     Indication: CATARACT OPERATION
     Dosage: 1 GTT OU QID OPHTHALMIC, 1 GTT OU QID OPHTHALMIC,  1 GTT  OU TID OPHTHALMIC
     Route: 047
     Dates: start: 20090401

REACTIONS (12)
  - DIPLOPIA [None]
  - EYE PAIN [None]
  - EYE PRURITUS [None]
  - EYE SWELLING [None]
  - EYELID PTOSIS [None]
  - LACRIMAL DISORDER [None]
  - MADAROSIS [None]
  - MUSCLE STRAIN [None]
  - MUSCLE TIGHTNESS [None]
  - PHOTOPHOBIA [None]
  - RETINAL DISORDER [None]
  - SENSATION OF FOREIGN BODY [None]
